FAERS Safety Report 12059316 (Version 2)
Quarter: 2016Q1

REPORT INFORMATION
  Report Type: Spontaneous
  Country: US (occurrence: US)
  Receive Date: 20160210
  Receipt Date: 20160216
  Transmission Date: 20160526
  Serious: Yes (Other)
  Sender: FDA-Public Use
  Company Number: US-PFIZER INC-2016071396

PATIENT
  Age: 61 Year
  Sex: Male
  Weight: 115.6 kg

DRUGS (10)
  1. ZYRTEC [Concomitant]
     Active Substance: CETIRIZINE HYDROCHLORIDE
     Indication: RHINITIS
     Dosage: 1 DF, DAILY
  2. LYRICA [Suspect]
     Active Substance: PREGABALIN
     Dosage: 600 MG, DAILY
  3. LYRICA [Suspect]
     Active Substance: PREGABALIN
     Indication: SYMPATHETIC NERVE INJURY
     Dosage: 600 MG, DAILY
     Dates: start: 2005
  4. LYRICA [Suspect]
     Active Substance: PREGABALIN
     Indication: NEURALGIA
     Dosage: 300 MG, DAILY
     Dates: start: 20160101
  5. TRIAMTERENE HYDROCHLORIDE [Concomitant]
     Active Substance: HYDROCHLOROTHIAZIDE\TRIAMTERENE
     Indication: RENAL LITHIASIS PROPHYLAXIS
     Dosage: ONE A DAY
  6. ALLOPURINOL. [Concomitant]
     Active Substance: ALLOPURINOL
     Indication: RENAL LITHIASIS PROPHYLAXIS
     Dosage: 300 MG, DAILY
  7. OMEPRAZOLE. [Concomitant]
     Active Substance: OMEPRAZOLE
     Indication: GASTRIC DISORDER
     Dosage: TWO CAPSULES DAILY
  8. LYRICA [Suspect]
     Active Substance: PREGABALIN
     Indication: FIBROMYALGIA
     Dosage: 300 MG, DAILY
     Dates: start: 2005
  9. LYRICA [Suspect]
     Active Substance: PREGABALIN
     Dosage: 900 MG, DAILY
  10. CLONAZEPAM. [Concomitant]
     Active Substance: CLONAZEPAM
     Indication: SLEEP DISORDER
     Dosage: 1 TABLET AT BEDTIME

REACTIONS (13)
  - Drug dependence [Unknown]
  - Insomnia [Unknown]
  - Nervousness [Not Recovered/Not Resolved]
  - Intentional product use issue [Unknown]
  - Irritability [Not Recovered/Not Resolved]
  - Prescribed overdose [Unknown]
  - Fatigue [Unknown]
  - Asthenia [Not Recovered/Not Resolved]
  - Drug withdrawal syndrome [Unknown]
  - Depression [Not Recovered/Not Resolved]
  - Intentional product misuse [Unknown]
  - Anxiety [Unknown]
  - Palpitations [Not Recovered/Not Resolved]

NARRATIVE: CASE EVENT DATE: 2005
